FAERS Safety Report 5899801-2 (Version None)
Quarter: 2008Q3

REPORT INFORMATION
  Report Type: 
  Country: None (occurrence: None)
  Receive Date: 20080924
  Receipt Date: 20080914
  Transmission Date: 20090109
  Serious: Yes (Other)
  Sender: FDA-Public Use
  Company Number: 2008S1009172

PATIENT
  Age: 74 Year
  Sex: Female

DRUGS (2)
  1. PHOSPHOSODA FLAVOR NOT SPECIFIED [Suspect]
     Indication: COLONOSCOPY
     Dosage: ;PO
     Route: 048
     Dates: start: 20061102, end: 20061102
  2. PHOSPHOSODA FLAVOR NOT SPECIFIED [Suspect]

REACTIONS (8)
  - ANAEMIA [None]
  - ANOREXIA [None]
  - ASTHENIA [None]
  - BLOOD CREATININE INCREASED [None]
  - DIARRHOEA [None]
  - NAUSEA [None]
  - RENAL FAILURE ACUTE [None]
  - RENAL FAILURE CHRONIC [None]
